FAERS Safety Report 9163983 (Version 3)
Quarter: 2013Q2

REPORT INFORMATION
  Report Type: Spontaneous
  Country: US (occurrence: US)
  Receive Date: 20130314
  Receipt Date: 20130515
  Transmission Date: 20140414
  Serious: Yes (Death, Hospitalization)
  Sender: FDA-Public Use
  Company Number: US-B.I. PHARMACEUTICALS,INC./RIDGEFIELD-2013-BI-06718BP

PATIENT
  Sex: Female
  Weight: 68.04 kg

DRUGS (9)
  1. PRADAXA [Suspect]
     Indication: ATRIAL FIBRILLATION
     Dosage: 300 MG
     Dates: start: 201101, end: 201112
  2. METOPROLOL TARTRATE [Concomitant]
     Dosage: 50 MG
     Route: 048
  3. TORSEMIDE [Concomitant]
     Dosage: 20 MG
     Route: 048
  4. AVAPRO [Concomitant]
     Dates: start: 2010, end: 2011
  5. ECOTRIN [Concomitant]
     Dosage: 325 MG
     Route: 048
  6. LIPITOR [Concomitant]
     Dosage: 20 MG
     Route: 048
     Dates: start: 2010, end: 2011
  7. SYNTHROID [Concomitant]
     Dosage: 25 MCG
     Route: 048
     Dates: start: 2010, end: 2011
  8. KLOR-CON (POTASSIUM CHLORIDE) [Concomitant]
     Dates: start: 2010, end: 2011
  9. MULTAQ [Concomitant]
     Dates: start: 2010, end: 2011

REACTIONS (2)
  - Subarachnoid haemorrhage [Fatal]
  - Subdural haematoma [Fatal]
